FAERS Safety Report 22969494 (Version 6)
Quarter: 2023Q4

REPORT INFORMATION
  Report Type: Other
  Country: EG (occurrence: EG)
  Receive Date: 20230922
  Receipt Date: 20231226
  Transmission Date: 20240110
  Serious: Yes (Life-Threatening, Other)
  Sender: FDA-Public Use
  Company Number: EG-002147023-NVSC2023EG043902

PATIENT
  Age: 30 Year
  Sex: Male

DRUGS (3)
  1. XOLAIR [Suspect]
     Active Substance: OMALIZUMAB
     Indication: Urticaria
     Route: 058
     Dates: start: 202211
  2. XOLAIR [Suspect]
     Active Substance: OMALIZUMAB
     Dosage: 2 DOSAGE FORM, QMO (START DATE WAS 22 OR 23 JAN 2023) (INJECTION EACH TIME AS PER HIS WORDS)
     Route: 058
     Dates: start: 202301
  3. EBASTINE [Concomitant]
     Active Substance: EBASTINE
     Indication: Urticaria
     Dosage: 2 DOSAGE FORM, BID (IN THE MORNING AND 2 IN THE EVENING)
     Dates: start: 20221115

REACTIONS (17)
  - Thrombosis [Unknown]
  - Myocardial infarction [Unknown]
  - Temperature intolerance [Not Recovered/Not Resolved]
  - Pruritus [Not Recovered/Not Resolved]
  - Product dose omission issue [Unknown]
  - Urticaria [Not Recovered/Not Resolved]
  - Drug dependence [Unknown]
  - Erythema [Not Recovered/Not Resolved]
  - Rash [Not Recovered/Not Resolved]
  - Depressed mood [Not Recovered/Not Resolved]
  - Monoplegia [Unknown]
  - Insomnia [Not Recovered/Not Resolved]
  - Drug ineffective [Not Recovered/Not Resolved]
  - Fatigue [Unknown]
  - Headache [Recovered/Resolved]
  - Hypophagia [Unknown]
  - Inappropriate schedule of product administration [Unknown]

NARRATIVE: CASE EVENT DATE: 20221101
